FAERS Safety Report 4725654-1 (Version None)
Quarter: 2005Q3

REPORT INFORMATION
  Report Type: 
  Country: None (occurrence: None)
  Receive Date: 20050727
  Receipt Date: 20050428
  Transmission Date: 20060218
  Serious: Yes (Hospitalization)
  Sender: FDA-Public Use
  Company Number: US-MERCK-0505USA00215

PATIENT
  Age: 66 Year
  Sex: Male
  Weight: 80 kg

DRUGS (5)
  1. VIOXX [Suspect]
     Indication: ARTHRALGIA
     Route: 048
     Dates: start: 20011231, end: 20040930
  2. VIOXX [Suspect]
     Indication: PAIN
     Route: 048
     Dates: start: 20011231, end: 20040930
  3. PRINIVIL [Concomitant]
     Indication: HYPERTENSION
     Route: 065
     Dates: start: 19960101
  4. XALATAN [Concomitant]
     Indication: GLAUCOMA
     Route: 065
     Dates: start: 19960101
  5. COSOPT [Concomitant]
     Indication: GLAUCOMA
     Route: 065
     Dates: start: 19960101

REACTIONS (5)
  - ARTHROPATHY [None]
  - BLOOD CHOLESTEROL INCREASED [None]
  - LOWER LIMB FRACTURE [None]
  - MYOCARDIAL INFARCTION [None]
  - ROTATOR CUFF SYNDROME [None]
